FAERS Safety Report 11078334 (Version 1)
Quarter: 2015Q2

REPORT INFORMATION
  Report Type: Report from Study
  Country: US (occurrence: US)
  Receive Date: 20150430
  Receipt Date: 20150430
  Transmission Date: 20150821
  Serious: Yes (Hospitalization, Other)
  Sender: FDA-Public Use
  Company Number: US-ABBVIE-15K-163-1380080-00

PATIENT
  Age: 62 Year
  Sex: Female
  Weight: 79.9 kg

DRUGS (3)
  1. HUMIRA [Suspect]
     Active Substance: ADALIMUMAB
     Route: 058
     Dates: start: 201503, end: 20150401
  2. HUMIRA [Suspect]
     Active Substance: ADALIMUMAB
     Indication: RHEUMATOID ARTHRITIS
     Route: 058
     Dates: start: 2002, end: 2003
  3. HUMIRA [Suspect]
     Active Substance: ADALIMUMAB
     Route: 058
     Dates: start: 2003, end: 201502

REACTIONS (8)
  - Trigeminal neuralgia [Not Recovered/Not Resolved]
  - Vth nerve injury [Not Recovered/Not Resolved]
  - Atypical pneumonia [Recovered/Resolved]
  - Cranial nerve neoplasm benign [Not Recovered/Not Resolved]
  - Pharyngitis [Recovered/Resolved]
  - Pneumonia [Recovered/Resolved]
  - Head injury [Recovered/Resolved]
  - Fall [Recovered/Resolved]

NARRATIVE: CASE EVENT DATE: 2011
